FAERS Safety Report 8607400-4 (Version None)
Quarter: 2012Q3

REPORT INFORMATION
  Report Type: 
  Country: None (occurrence: None)
  Receive Date: 20120731
  Receipt Date: 20120716
  Transmission Date: 20120928
  Serious: Yes (Hospitalization)
  Sender: FDA-Public Use
  Company Number: GB-IGSA-IG1094

PATIENT
  Age: 13 Year
  Sex: Female

DRUGS (18)
  1. TOBRAMYCIN [Concomitant]
  2. URSODIOL [Concomitant]
  3. VITAMIN E [Concomitant]
  4. TARGOCID [Suspect]
     Indication: STAPHYLOCOCCAL INFECTION
     Dosage: 400 MG;IV_INF;IV;QD
     Route: 042
     Dates: start: 20120528, end: 20120611
  5. PHYTONADIONE [Concomitant]
  6. IMMUNE GLOBULIN NOS [Suspect]
     Indication: HYPOGAMMAGLOBULINAEMIA
     Dosage: 25 MG;IV_INF;IV
     Route: 042
     Dates: start: 20120530
  7. COLECALCIFEROL (COLECALCIFEROL) [Concomitant]
  8. ALBUTEROL SULFATE [Concomitant]
  9. SERETIDE (SERETIDE) [Concomitant]
  10. THEOPHYLLINE [Concomitant]
  11. AZITHROMYCIN [Concomitant]
  12. PULMOZYME [Concomitant]
  13. OMEPRAZOLE [Concomitant]
  14. ACETAMINOPHEN [Concomitant]
  15. CEFTAZIDINE (CEFTAZIDINE) [Concomitant]
  16. VITAMIN A D (VITAMIDYNE A AND D) [Concomitant]
  17. CREON [Concomitant]
  18. TAURINE (TAURINE) [Concomitant]

REACTIONS (8)
  - FEELING ABNORMAL [None]
  - RENAL IMPAIRMENT [None]
  - MALAISE [None]
  - DISSEMINATED INTRAVASCULAR COAGULATION [None]
  - APHAGIA [None]
  - PYREXIA [None]
  - BLOOD POTASSIUM INCREASED [None]
  - SERUM SICKNESS [None]
